FAERS Safety Report 6724629-0 (Version None)
Quarter: 2010Q2

REPORT INFORMATION
  Report Type: 
  Country: None (occurrence: None)
  Receive Date: 20100513
  Receipt Date: 20100429
  Transmission Date: 20101027
  Serious: Yes (Hospitalization, Other)
  Sender: FDA-Public Use
  Company Number: US-ELI_LILLY_AND_COMPANY-US201001004818

PATIENT
  Sex: Female

DRUGS (26)
  1. FORTEO [Suspect]
     Indication: OSTEOPOROSIS
     Dosage: 20 UG, DAILY (1/D)
     Route: 065
     Dates: start: 20091101
  2. FORTEO [Suspect]
     Dosage: 20 UG, DAILY (1/D)
  3. RELAFEN [Concomitant]
  4. OXYBUTYNIN [Concomitant]
  5. PREDNISONE [Concomitant]
  6. HYDROCHLORZIDE [Concomitant]
  7. OXAPROZIN [Concomitant]
  8. VITAMIN D [Concomitant]
  9. IRON [Concomitant]
  10. XANAX [Concomitant]
  11. ADVAIR DISKUS 100/50 [Concomitant]
  12. AMBIEN CR [Concomitant]
  13. ASPIRIN [Concomitant]
  14. FLONASE [Concomitant]
  15. GABAPENTIN [Concomitant]
  16. SIMVASTATIN [Concomitant]
  17. MIRALAX [Concomitant]
  18. VITAMIN E [Concomitant]
  19. CENTRUM [Concomitant]
  20. FOLIC ACID [Concomitant]
  21. FISH OIL [Concomitant]
  22. CALCIUM [Concomitant]
  23. VITAMIN B-12 [Concomitant]
  24. COLACE [Concomitant]
  25. FIBER-LAX [Concomitant]
  26. COMBIVENT [Concomitant]

REACTIONS (2)
  - FALL [None]
  - FEMUR FRACTURE [None]
